FAERS Safety Report 14602081 (Version 3)
Quarter: 2018Q4

REPORT INFORMATION
  Report Type: Report from Study
  Country: None (occurrence: BR)
  Receive Date: 20180306
  Receipt Date: 20181207
  Transmission Date: 20190204
  Serious: Yes (Hospitalization, Other)
  Sender: FDA-Public Use
  Company Number: BR-ABBVIE-18K-020-2271288-00

PATIENT
  Age: 64 Year
  Sex: Female
  Weight: 64 kg

DRUGS (13)
  1. HUMIRA [Suspect]
     Active Substance: ADALIMUMAB
     Indication: RHEUMATOID ARTHRITIS
     Route: 058
     Dates: start: 20091101
  2. DEFLAZACORT [Concomitant]
     Active Substance: DEFLAZACORT
     Indication: OSTEOARTHRITIS
  3. ACETYLSALICYLIC ACID [Concomitant]
     Active Substance: ASPIRIN
     Indication: RHEUMATOID ARTHRITIS
  4. HUMIRA [Suspect]
     Active Substance: ADALIMUMAB
     Route: 058
     Dates: end: 20171222
  5. ARTROLIVE [Concomitant]
     Active Substance: CHONDROITIN SULFATE (BOVINE)\GLUCOSAMINE SULFATE
     Indication: ARTHRITIS
  6. BETAMETHASONE. [Concomitant]
     Active Substance: BETAMETHASONE
     Indication: PRODUCT USED FOR UNKNOWN INDICATION
  7. AMOXICILLIN. [Suspect]
     Active Substance: AMOXICILLIN
     Indication: PRODUCT USED FOR UNKNOWN INDICATION
     Route: 065
  8. DEFLAZACORT [Concomitant]
     Active Substance: DEFLAZACORT
     Indication: RHEUMATOID ARTHRITIS
  9. METHOTREXATE. [Concomitant]
     Active Substance: METHOTREXATE
     Indication: PRODUCT USED FOR UNKNOWN INDICATION
  10. BUSONID [Concomitant]
     Active Substance: BUDESONIDE
     Indication: CERUMEN REMOVAL
  11. PANTOPRAZOLE [Concomitant]
     Active Substance: PANTOPRAZOLE
     Indication: GASTRIC DISORDER
  12. HUMIRA [Suspect]
     Active Substance: ADALIMUMAB
     Route: 058
     Dates: end: 2018
  13. FOLIC ACID. [Concomitant]
     Active Substance: FOLIC ACID
     Indication: VITAMIN SUPPLEMENTATION

REACTIONS (21)
  - Heart valve incompetence [Not Recovered/Not Resolved]
  - Musculoskeletal disorder [Unknown]
  - Peripheral swelling [Recovered/Resolved]
  - Bacterial infection [Unknown]
  - Dry mouth [Recovered/Resolved]
  - Ear infection [Recovered/Resolved]
  - Rheumatoid arthritis [Recovering/Resolving]
  - Osteoarthritis [Not Recovered/Not Resolved]
  - Tinnitus [Recovering/Resolving]
  - Ear infection [Recovered/Resolved]
  - Nasal septum perforation [Recovered/Resolved]
  - Diabetes mellitus [Unknown]
  - Nasal congestion [Recovered/Resolved]
  - Middle ear effusion [Recovering/Resolving]
  - Pyrexia [Recovered/Resolved]
  - Knee arthroplasty [Recovering/Resolving]
  - Drug hypersensitivity [Recovered/Resolved]
  - Hypotension [Unknown]
  - Weight decreased [Unknown]
  - Immunodeficiency [Unknown]
  - Hypertension [Not Recovered/Not Resolved]

NARRATIVE: CASE EVENT DATE: 201408
